FAERS Safety Report 14860454 (Version 1)
Quarter: 2018Q2

REPORT INFORMATION
  Report Type: Not Available
  Country: US (occurrence: US)
  Receive Date: 20180508
  Receipt Date: 20180508
  Transmission Date: 20180711
  Serious: No
  Sender: FDA-Public Use
  Company Number: US-FOUNDATIONCONSUMERHC-2018-US-002011

PATIENT
  Age: 22 Year
  Sex: Female
  Weight: 79.38 kg

DRUGS (1)
  1. PLAN B ONE-STEP [Suspect]
     Active Substance: LEVONORGESTREL
     Dosage: 1.5 MG TABLET DISSOLVED IN THE MOUTH X1 DOSE
     Route: 048
     Dates: start: 20180206, end: 20180206

REACTIONS (2)
  - Vomiting [Unknown]
  - Intentional product misuse [Recovered/Resolved]

NARRATIVE: CASE EVENT DATE: 20180206
